FAERS Safety Report 21067903 (Version 1)
Quarter: 2022Q3

REPORT INFORMATION
  Report Type: Other
  Country: US (occurrence: None)
  Receive Date: 20220712
  Receipt Date: 20220712
  Transmission Date: 20221027
  Serious: Yes (Hospitalization, Other)
  Sender: FDA-Public Use
  Company Number: US-ROCHE-3133260

PATIENT
  Age: 60 Year
  Sex: Female

DRUGS (5)
  1. OCREVUS [Suspect]
     Active Substance: OCRELIZUMAB
     Indication: Relapsing multiple sclerosis
     Route: 065
     Dates: start: 20181015
  2. OCREVUS [Suspect]
     Active Substance: OCRELIZUMAB
     Route: 042
  3. TOPAMAX [Concomitant]
     Active Substance: TOPIRAMATE
  4. NEURONTIN [Concomitant]
     Active Substance: GABAPENTIN
  5. PRILOSEC [Concomitant]
     Active Substance: OMEPRAZOLE MAGNESIUM

REACTIONS (5)
  - COVID-19 [Recovering/Resolving]
  - Off label use [Unknown]
  - Fall [Unknown]
  - Upper limb fracture [Unknown]
  - Back pain [Unknown]

NARRATIVE: CASE EVENT DATE: 20220501
